FAERS Safety Report 5016751-4 (Version None)
Quarter: 2006Q2

REPORT INFORMATION
  Report Type: 
  Country: None (occurrence: None)
  Receive Date: 20060526
  Receipt Date: 20060517
  Transmission Date: 20061013
  Serious: Yes (Hospitalization)
  Sender: FDA-Public Use
  Company Number: FRWYE598904MAY06

PATIENT
  Age: 36 Year
  Sex: Female

DRUGS (1)
  1. MINIDRIL (LEVONORGESTREL/ETHINYL ESTRADIOL, TABLET, 0) [Suspect]
     Indication: ORAL CONTRACEPTION
     Dosage: 1 TABLET 1X PER 1 DAY ORAL
     Route: 048

REACTIONS (5)
  - COUGH [None]
  - INFLUENZA [None]
  - JUGULAR VEIN THROMBOSIS [None]
  - LYMPHOEDEMA [None]
  - SUBCLAVIAN VEIN THROMBOSIS [None]
